FAERS Safety Report 21387866 (Version 1)
Quarter: 2022Q3

REPORT INFORMATION
  Report Type: Spontaneous
  Country: US (occurrence: None)
  Receive Date: 20220926
  Receipt Date: 20220926
  Transmission Date: 20221027
  Serious: No
  Sender: FDA-Public Use
  Company Number: None

PATIENT
  Age: 77 Year
  Sex: Male
  Weight: 99.06 kg

DRUGS (12)
  1. ABIRATERONE [Suspect]
     Active Substance: ABIRATERONE
     Indication: Prostate cancer
     Dosage: FREQUENCY : DAILY;?
     Route: 048
  2. ALLEGRA [Concomitant]
  3. CENTRUM [Concomitant]
  4. CHOLECALCIFEROL [Concomitant]
  5. CURCUMIN [Concomitant]
  6. GLIPIZIDE [Concomitant]
  7. LEXAPRO [Concomitant]
  8. LUPRON [Concomitant]
  9. MELATONIN [Concomitant]
     Active Substance: MELATONIN
  10. METFORMIN [Concomitant]
  11. OXYCODONE-ACETAMINOPHEN [Concomitant]
  12. PREDNISONE [Concomitant]

REACTIONS (1)
  - Disease progression [None]
